FAERS Safety Report 16815991 (Version 1)
Quarter: 2019Q3

REPORT INFORMATION
  Report Type: Spontaneous
  Country: IN (occurrence: IN)
  Receive Date: 20190917
  Receipt Date: 20190917
  Transmission Date: 20191005
  Serious: Yes (Hospitalization)
  Sender: FDA-Public Use
  Company Number: IN-TORRENT-00002372

PATIENT
  Age: 26 Year
  Sex: Female

DRUGS (3)
  1. ARIPIPRAZOLE. [Suspect]
     Active Substance: ARIPIPRAZOLE
     Indication: SCHIZOPHRENIA
     Dosage: STARTED 1 MONTH AGO
  2. ESCITALOPRAM [Concomitant]
     Active Substance: ESCITALOPRAM OXALATE
     Indication: SCHIZOPHRENIA
  3. OLANZAPINE. [Concomitant]
     Active Substance: OLANZAPINE
     Indication: SCHIZOPHRENIA
     Dosage: STOPPED IN 8 WEEKS

REACTIONS (10)
  - Extrapyramidal disorder [Recovering/Resolving]
  - Schizophrenia [Recovering/Resolving]
  - Fear [Recovering/Resolving]
  - Depression [Recovered/Resolved]
  - Catatonia [Recovering/Resolving]
  - Loss of personal independence in daily activities [Recovering/Resolving]
  - Insomnia [Recovering/Resolving]
  - Apathy [Recovering/Resolving]
  - Restlessness [Recovering/Resolving]
  - Suicidal ideation [Recovered/Resolved]
